FAERS Safety Report 9333301 (Version 2)
Quarter: 2014Q1

REPORT INFORMATION
  Report Type: Spontaneous
  Country: IT (occurrence: IT)
  Receive Date: 20130606
  Receipt Date: 20140120
  Transmission Date: 20141002
  Serious: Yes (Hospitalization)
  Sender: FDA-Public Use
  Company Number: PHHY2013IT055865

PATIENT
  Sex: Male

DRUGS (3)
  1. CLOZAPINE [Suspect]
     Dosage: 1 DF, (1 POSOLOGIC UNIT; TOTAL)
     Route: 048
     Dates: start: 20130426, end: 20130426
  2. RIVOTRIL [Suspect]
     Dosage: 24 MG, (12 TABLET; TOTAL)
     Route: 048
     Dates: start: 20130426, end: 20130426
  3. DEPAKINE CHRONO [Suspect]
     Dosage: 2000 MG, (4 TABLET; TOTAL)
     Route: 048
     Dates: start: 20130426, end: 20130426

REACTIONS (4)
  - Toxicity to various agents [Not Recovered/Not Resolved]
  - Drug abuse [Not Recovered/Not Resolved]
  - Sopor [Not Recovered/Not Resolved]
  - Vomiting [Not Recovered/Not Resolved]
